FAERS Safety Report 6579418-7 (Version None)
Quarter: 2010Q1

REPORT INFORMATION
  Report Type: 
  Country: None (occurrence: None)
  Receive Date: 20100209
  Receipt Date: 20100209
  Transmission Date: 20100710
  Serious: Yes (Other)
  Sender: FDA-Public Use
  Company Number: None

PATIENT
  Age: 67 Year
  Sex: Female
  Weight: 58.9676 kg

DRUGS (1)
  1. LIPITOR [Suspect]
     Indication: BLOOD CHOLESTEROL INCREASED
     Dates: start: 20090102, end: 20090902

REACTIONS (12)
  - CARPAL TUNNEL SYNDROME [None]
  - CEREBROVASCULAR ACCIDENT [None]
  - CHOKING [None]
  - CRANIAL NERVE DISORDER [None]
  - DYSARTHRIA [None]
  - DYSPNOEA [None]
  - MUSCULAR WEAKNESS [None]
  - PALATAL DISORDER [None]
  - PARKINSON'S DISEASE [None]
  - PHARYNGEAL DISORDER [None]
  - POST PROCEDURAL HAEMATOMA [None]
  - TONGUE DISORDER [None]
